FAERS Safety Report 20763367 (Version 4)
Quarter: 2025Q1

REPORT INFORMATION
  Report Type: Report from Study
  Country: US (occurrence: US)
  Receive Date: 20220428
  Receipt Date: 20250218
  Transmission Date: 20250409
  Serious: Yes (Hospitalization, Other)
  Sender: OTSUKA
  Company Number: US-OTSUKA-2022_024990

PATIENT
  Sex: Male
  Weight: 122.5 kg

DRUGS (5)
  1. DEXTROMETHORPHAN HYDROBROMIDE\QUINIDINE SULFATE [Suspect]
     Active Substance: DEXTROMETHORPHAN HYDROBROMIDE\QUINIDINE SULFATE
     Indication: Affect lability
     Route: 048
  2. DEXTROMETHORPHAN HYDROBROMIDE\QUINIDINE SULFATE [Suspect]
     Active Substance: DEXTROMETHORPHAN HYDROBROMIDE\QUINIDINE SULFATE
     Dosage: 1 DF (20-10MG), BID (ONE CAPSULE IN MORNING AND BEDTIME)
     Route: 048
     Dates: start: 201812
  3. DEXTROMETHORPHAN HYDROBROMIDE\QUINIDINE SULFATE [Suspect]
     Active Substance: DEXTROMETHORPHAN HYDROBROMIDE\QUINIDINE SULFATE
     Route: 048
  4. CYMBALTA [Concomitant]
     Active Substance: DULOXETINE HYDROCHLORIDE
     Indication: Affect lability
     Dosage: 1 DF, QD
     Route: 048
  5. CANNABIS SATIVA SUBSP. INDICA TOP [Concomitant]
     Active Substance: CANNABIS SATIVA SUBSP. INDICA TOP
     Indication: Affect lability
     Route: 065

REACTIONS (10)
  - Dehydration [Recovered/Resolved]
  - Renal impairment [Recovered/Resolved]
  - Meningioma [Unknown]
  - Migraine [Unknown]
  - Essential tremor [Unknown]
  - Cardiovascular disorder [Unknown]
  - Visual impairment [Unknown]
  - Bronchitis [Unknown]
  - Disease recurrence [Recovered/Resolved]
  - Therapy interrupted [Unknown]
